FAERS Safety Report 6851205-1 (Version None)
Quarter: 2010Q3

REPORT INFORMATION
  Report Type: 
  Country: None (occurrence: None)
  Receive Date: 20100716
  Receipt Date: 20100707
  Transmission Date: 20110219
  Serious: Yes (Death, Hospitalization)
  Sender: FDA-Public Use
  Company Number: US-GENENTECH-304036

PATIENT
  Age: 84 Year
  Sex: Male

DRUGS (2)
  1. RITUXIMAB [Suspect]
     Indication: EVANS SYNDROME
     Route: 065
  2. PREDNISONE [Suspect]
     Indication: EVANS SYNDROME
     Dosage: UNK
     Route: 065

REACTIONS (1)
  - BABESIOSIS [None]
